FAERS Safety Report 5220214-0 (Version None)
Quarter: 2006Q4

REPORT INFORMATION
  Report Type: 
  Country: None (occurrence: None)
  Receive Date: 20061201
  Receipt Date: 20060719
  Transmission Date: 20070319
  Serious: No
  Sender: FDA-Public Use
  Company Number: 2006PV017976

PATIENT
  Age: 56 Year
  Sex: Female
  Weight: 90.7194 kg

DRUGS (6)
  1. BYETTA [Suspect]
     Indication: DIABETES MELLITUS NON-INSULIN-DEPENDENT
     Dosage: SEE IMAGE
     Route: 058
     Dates: start: 20060614, end: 20060711
  2. BYETTA [Suspect]
     Indication: DIABETES MELLITUS NON-INSULIN-DEPENDENT
     Dosage: SEE IMAGE
     Route: 058
     Dates: start: 20060712
  3. AMARYL [Concomitant]
  4. METFORMIN HCL [Concomitant]
  5. AVANDIA [Concomitant]
  6. MYLANTA [Concomitant]

REACTIONS (12)
  - ASTHENIA [None]
  - BLOOD GLUCOSE DECREASED [None]
  - BLOOD GLUCOSE INCREASED [None]
  - INFLUENZA LIKE ILLNESS [None]
  - INJECTION SITE BRUISING [None]
  - INJECTION SITE HAEMORRHAGE [None]
  - NAUSEA [None]
  - SINUS CONGESTION [None]
  - SINUS HEADACHE [None]
  - STRESS [None]
  - VOMITING [None]
  - WEIGHT DECREASED [None]
